FAERS Safety Report 9410280 (Version 1)
Quarter: 2013Q3

REPORT INFORMATION
  Report Type: Spontaneous
  Country: US (occurrence: US)
  Receive Date: 20130719
  Receipt Date: 20130719
  Transmission Date: 20140515
  Serious: Yes (Other)
  Sender: FDA-Public Use
  Company Number: US-PFIZER INC-2013211076

PATIENT
  Sex: Male

DRUGS (5)
  1. LYRICA [Suspect]
     Indication: FIBROMYALGIA
     Dosage: 600 MG, 1X/DAY
  2. LYRICA [Suspect]
     Indication: COMPLEX REGIONAL PAIN SYNDROME
     Dosage: 3 DF, (FOR 3-4 DAYS)
  3. LYRICA [Suspect]
     Indication: HERPES ZOSTER
     Dosage: 2 DF, (FOR 3-4 DAYS)
  4. LYRICA [Suspect]
     Indication: NEUROPATHY PERIPHERAL
     Dosage: 1 DF, (FOR 3-4 DAYS)
  5. LYRICA [Suspect]
     Indication: PARAESTHESIA
     Dosage: 1X/DAY, (1/2 CAPSULE DAILY)

REACTIONS (4)
  - Drug dependence [Unknown]
  - Withdrawal syndrome [Unknown]
  - Abdominal discomfort [Unknown]
  - Malaise [Recovered/Resolved]
